FAERS Safety Report 5593664-0 (Version None)
Quarter: 2008Q1

REPORT INFORMATION
  Report Type: 
  Country: None (occurrence: None)
  Receive Date: 20080116
  Receipt Date: 20080108
  Transmission Date: 20080703
  Serious: Yes (Other)
  Sender: FDA-Public Use
  Company Number: PHNR2003AU01258

PATIENT
  Sex: Female

DRUGS (4)
  1. CLOZARIL [Suspect]
     Indication: SCHIZOPHRENIA
     Dosage: 12.5 - 700MG/DAY
     Route: 048
     Dates: start: 20030619, end: 20071230
  2. BENZTROPINE MESYLATE [Suspect]
     Dosage: 2 MG, QD
     Route: 048
  3. VALPROATE SODIUM [Concomitant]
     Dosage: 1000 MG, BID
     Route: 048
  4. MIRTAZAPINE [Concomitant]
     Dosage: 30 MG, NOCTE
     Route: 048

REACTIONS (3)
  - ELECTROCARDIOGRAM QT PROLONGED [None]
  - PALPITATIONS [None]
  - SINUS TACHYCARDIA [None]
